FAERS Safety Report 11999930 (Version 4)
Quarter: 2016Q1

REPORT INFORMATION
  Report Type: Spontaneous
  Country: US (occurrence: US)
  Receive Date: 20160204
  Receipt Date: 20160314
  Transmission Date: 20160526
  Serious: Yes (Hospitalization, Other)
  Sender: FDA-Public Use
  Company Number: US-ACTAVIS-2016-02435

PATIENT
  Age: 61 Year
  Sex: Female

DRUGS (5)
  1. PRAZOSIN (WATSON LABORATORIES) [Suspect]
     Active Substance: PRAZOSIN
     Indication: HYPERTENSION
     Route: 048
  2. AMLODIPINE [Suspect]
     Active Substance: AMLODIPINE BESYLATE
     Indication: HYPERTENSION
     Dosage: 10 MG, DAILY
     Route: 048
  3. AMLODIPINE-BENAZEPRIL (WATSON LABORATORIES) [Suspect]
     Active Substance: AMLODIPINE BESYLATE\BENAZEPRIL HYDROCHLORIDE
     Indication: HYPERTENSION
     Dosage: AMLODIPINE 10 MG, BENAZEPRIL 40 MG, DAILY
     Route: 048
  4. CAPTOPRIL (WATSON LABORATORIES) [Suspect]
     Active Substance: CAPTOPRIL
     Indication: HYPERTENSION
     Dosage: UNKNOWN
     Route: 065
  5. TRIAMTERENE/HYDROCHLOROTHIAZIDE (WATSON LABORATORIES) [Suspect]
     Active Substance: HYDROCHLOROTHIAZIDE\TRIAMTERENE
     Indication: HYPERTENSION
     Dosage: 25 MG HYDROCHLOROTHIAZIDE, 37.5 MG TRIAMTERENE, DAILY
     Route: 048

REACTIONS (4)
  - Drug withdrawal syndrome [Unknown]
  - Posterior reversible encephalopathy syndrome [Recovered/Resolved]
  - Acute kidney injury [Recovered/Resolved]
  - Hypotension [Unknown]
